FAERS Safety Report 10593086 (Version 1)
Quarter: 2014Q4

REPORT INFORMATION
  Report Type: Spontaneous
  Country: US (occurrence: None)
  Receive Date: 20141118
  Receipt Date: 20141118
  Transmission Date: 20150529
  Serious: Yes (Disabling)
  Sender: FDA-Public Use
  Company Number: None

PATIENT
  Age: 30 Year
  Sex: Female
  Weight: 79.38 kg

DRUGS (1)
  1. CIPRO [Suspect]
     Active Substance: CIPROFLOXACIN HYDROCHLORIDE
     Indication: URINARY TRACT INFECTION
     Dates: start: 20130314, end: 20130325

REACTIONS (7)
  - Panic attack [None]
  - Gastrointestinal disorder [None]
  - Exposure during pregnancy [None]
  - Postural orthostatic tachycardia syndrome [None]
  - Anxiety [None]
  - Histamine intolerance [None]
  - Autonomic nervous system imbalance [None]

NARRATIVE: CASE EVENT DATE: 20130314
